FAERS Safety Report 14467309 (Version 4)
Quarter: 2018Q2

REPORT INFORMATION
  Report Type: Spontaneous
  Country: US (occurrence: US)
  Receive Date: 20180131
  Receipt Date: 20180425
  Transmission Date: 20180711
  Serious: Yes (Death, Hospitalization)
  Sender: FDA-Public Use
  Company Number: US-JNJFOC-20180136025

PATIENT
  Sex: Male
  Weight: 53.52 kg

DRUGS (1)
  1. ZYTIGA [Suspect]
     Active Substance: ABIRATERONE ACETATE
     Indication: PROSTATE CANCER
     Route: 048
     Dates: end: 201802

REACTIONS (4)
  - Weight decreased [Unknown]
  - Myocardial infarction [Unknown]
  - Pneumonia aspiration [Fatal]
  - Cardiac failure [Fatal]

NARRATIVE: CASE EVENT DATE: 2018
